FAERS Safety Report 13921023 (Version 1)
Quarter: 2017Q3

REPORT INFORMATION
  Report Type: Spontaneous
  Country: IL (occurrence: IL)
  Receive Date: 20170830
  Receipt Date: 20170830
  Transmission Date: 20171127
  Serious: Yes (Other)
  Sender: FDA-Public Use
  Company Number: IL-LPDUSPRD-20171176

PATIENT
  Age: 37 Year
  Sex: Female

DRUGS (1)
  1. FERINJECT [Suspect]
     Active Substance: FERRIC CARBOXYMALTOSE
     Dosage: 1000 MG EVERY 1.5- 2 MONTHS
     Route: 041
     Dates: start: 2016

REACTIONS (12)
  - Generalised erythema [Unknown]
  - Hiatus hernia [Unknown]
  - Leiomyoma [Unknown]
  - Pruritus generalised [Unknown]
  - Liver function test abnormal [Unknown]
  - Fatigue [Unknown]
  - Hydronephrosis [Unknown]
  - Somnolence [Unknown]
  - Endometrial disorder [Unknown]
  - Abdominal pain [Unknown]
  - Chest pain [Unknown]
  - Hepatic pain [Unknown]

NARRATIVE: CASE EVENT DATE: 2017
